FAERS Safety Report 9475775 (Version 1)
Quarter: 2013Q3

REPORT INFORMATION
  Report Type: Spontaneous
  Country: US (occurrence: None)
  Receive Date: 20130821
  Receipt Date: 20130821
  Transmission Date: 20140515
  Serious: No
  Sender: FDA-Public Use
  Company Number: GAM-116-13-US

PATIENT
  Age: 38 Year
  Sex: Female

DRUGS (1)
  1. OCTAGRAM 10% (HUMAN NORMAL IMMUNE GLOBULIN) [Suspect]
     Dosage: 2X 3 /WEEKS
     Route: 042
     Dates: start: 20130601, end: 20130601

REACTIONS (2)
  - Erythema [None]
  - Erythema [None]
